FAERS Safety Report 5133229-8 (Version None)
Quarter: 2006Q4

REPORT INFORMATION
  Report Type: 
  Country: None (occurrence: None)
  Receive Date: 20061018
  Receipt Date: 20061002
  Transmission Date: 20070319
  Serious: Yes (Hospitalization)
  Sender: FDA-Public Use
  Company Number: 2006SP003821

PATIENT
  Age: 34 Year
  Sex: Male

DRUGS (1)
  1. TEMODAL [Suspect]
     Indication: ASTROCYTOMA
     Dosage: 140 MG; QD; PO
     Route: 048

REACTIONS (2)
  - CAPILLARY LEAK SYNDROME [None]
  - CELL DEATH [None]
